FAERS Safety Report 23299695 (Version 1)
Quarter: 2023Q4

REPORT INFORMATION
  Report Type: Spontaneous
  Country: US (occurrence: US)
  Receive Date: 20231215
  Receipt Date: 20231215
  Transmission Date: 20240110
  Serious: Yes (Hospitalization)
  Sender: FDA-Public Use
  Company Number: US-STRIDES ARCOLAB LIMITED-2023SP001491

PATIENT
  Age: 3 Year
  Sex: Female

DRUGS (5)
  1. PROPRANOLOL [Suspect]
     Active Substance: PROPRANOLOL HYDROCHLORIDE
     Indication: Paroxysmal sympathetic hyperactivity
     Dosage: UNK
     Route: 065
  2. PROPRANOLOL [Suspect]
     Active Substance: PROPRANOLOL HYDROCHLORIDE
     Indication: Autonomic nervous system imbalance
  3. MANNITOL [Concomitant]
     Active Substance: MANNITOL
     Indication: Intracranial pressure increased
     Dosage: UNK
     Route: 065
  4. MANNITOL [Concomitant]
     Active Substance: MANNITOL
     Indication: Craniocerebral injury
  5. METHADONE [Concomitant]
     Active Substance: METHADONE HYDROCHLORIDE
     Indication: Analgesic therapy
     Dosage: UNK
     Route: 065

REACTIONS (1)
  - Drug ineffective for unapproved indication [Unknown]
